FAERS Safety Report 19481658 (Version 2)
Quarter: 2021Q3

REPORT INFORMATION
  Report Type: Report from Study
  Country: DE (occurrence: DE)
  Receive Date: 20210701
  Receipt Date: 20210825
  Transmission Date: 20211014
  Serious: Yes (Life-Threatening, Hospitalization, Disabling, Other)
  Sender: FDA-Public Use
  Company Number: DE-TAKEDA-DE201827393

PATIENT
  Age: 32 Year
  Sex: Male
  Weight: 81 kg

DRUGS (25)
  1. ADVATE [Suspect]
     Active Substance: ANTIHEMOPHILIC FACTOR, HUMAN RECOMBINANT
     Indication: PRODUCT USED FOR UNKNOWN INDICATION
     Dosage: 2000 IU, UNK
     Route: 042
     Dates: start: 20180219
  2. ADVATE [Suspect]
     Active Substance: ANTIHEMOPHILIC FACTOR, HUMAN RECOMBINANT
     Dosage: 3500 INTERNATIONAL UNIT
     Route: 042
     Dates: start: 20180219, end: 20200219
  3. LEVETIRACETAM. [Concomitant]
     Active Substance: LEVETIRACETAM
     Indication: SEIZURE
     Dosage: 100 MICROGRAM, QD
     Route: 065
     Dates: start: 201606, end: 20180704
  4. METHADONE [Concomitant]
     Active Substance: METHADONE HYDROCHLORIDE
     Dosage: 20 MILLIGRAM
     Route: 065
     Dates: start: 20180221
  5. TRAMADOL. [Concomitant]
     Active Substance: TRAMADOL
     Dosage: 60 DROPS
     Route: 065
     Dates: start: 20190116
  6. CLONIDINE. [Concomitant]
     Active Substance: CLONIDINE
     Dosage: 150 MICROGRAM
     Route: 065
     Dates: end: 20180218
  7. LEVETIRACETAM. [Concomitant]
     Active Substance: LEVETIRACETAM
     Dosage: 500 MICROGRAM, QD
     Route: 065
     Dates: start: 20180704
  8. METHADONE [Concomitant]
     Active Substance: METHADONE HYDROCHLORIDE
     Dosage: 50 MILLIGRAM, 5 TIMES PER DAY
     Route: 065
     Dates: start: 201501, end: 20180218
  9. CLONAZEPAM. [Concomitant]
     Active Substance: CLONAZEPAM
     Indication: MAJOR DEPRESSION
     Dosage: 2 MILLIGRAM, BID
     Route: 065
     Dates: start: 2008, end: 20180218
  10. METHADONE [Concomitant]
     Active Substance: METHADONE HYDROCHLORIDE
     Dosage: 10 MILLIGRAM, TID
     Route: 065
     Dates: start: 2010, end: 201501
  11. THIAMINE. [Concomitant]
     Active Substance: THIAMINE
     Indication: PRODUCT USED FOR UNKNOWN INDICATION
     Dosage: 300 MILLIGRAM, QD
     Route: 065
     Dates: start: 2013, end: 20150731
  12. PHENYTOIN. [Concomitant]
     Active Substance: PHENYTOIN
     Indication: SEIZURE
     Dosage: 100 MILLIGRAM, TID
     Route: 065
     Dates: start: 2003, end: 20180704
  13. TRAMADOL. [Concomitant]
     Active Substance: TRAMADOL
     Indication: MYALGIA
     Dosage: 20 DROPS, TID
     Route: 065
     Dates: start: 20180303, end: 20190115
  14. LEVOMEPROMAZINE [Concomitant]
     Active Substance: LEVOMEPROMAZINE
     Indication: MAJOR DEPRESSION
     Dosage: UNK
     Dates: start: 201604, end: 20180208
  15. ADVATE [Suspect]
     Active Substance: ANTIHEMOPHILIC FACTOR, HUMAN RECOMBINANT
     Indication: PRODUCT USED FOR UNKNOWN INDICATION
     Dosage: 2000 IU, UNK
     Route: 042
     Dates: start: 20180219
  16. SERTRALINE [Concomitant]
     Active Substance: SERTRALINE HYDROCHLORIDE
     Indication: MAJOR DEPRESSION
     Dosage: 50 MILLIGRAM, QD
     Route: 065
     Dates: start: 201501
  17. TRAMADOL. [Concomitant]
     Active Substance: TRAMADOL
     Dosage: 50 MILLIGRAM, TID
     Route: 065
     Dates: start: 2012, end: 20180219
  18. ADVATE [Suspect]
     Active Substance: ANTIHEMOPHILIC FACTOR, HUMAN RECOMBINANT
     Dosage: 3500 INTERNATIONAL UNIT
     Route: 042
     Dates: start: 20180219, end: 20200219
  19. CLONAZEPAM. [Concomitant]
     Active Substance: CLONAZEPAM
     Indication: SUICIDAL IDEATION
     Dosage: 2 MILLIGRAM, BID
     Route: 065
     Dates: start: 20190116
  20. ADVATE [Suspect]
     Active Substance: ANTIHEMOPHILIC FACTOR, HUMAN RECOMBINANT
     Dosage: 3500 INTERNATIONAL UNIT
     Route: 042
     Dates: start: 20180219, end: 20200219
  21. METHADONE [Concomitant]
     Active Substance: METHADONE HYDROCHLORIDE
     Indication: MYALGIA
     Dosage: 10 MILLIGRAM, TID
     Route: 065
     Dates: start: 20180219, end: 20180220
  22. PHENYTOIN. [Concomitant]
     Active Substance: PHENYTOIN
     Dosage: 125 MILLIGRAM, TID
     Route: 065
     Dates: start: 20180704
  23. ADVATE [Suspect]
     Active Substance: ANTIHEMOPHILIC FACTOR, HUMAN RECOMBINANT
     Indication: PRODUCT USED FOR UNKNOWN INDICATION
     Dosage: 2000 IU, UNK
     Route: 042
     Dates: start: 20180219
  24. CLONIDINE. [Concomitant]
     Active Substance: CLONIDINE
     Indication: MIGRAINE
     Dosage: 150 MICROGRAM, 5 TIMES PER DAY
     Route: 065
     Dates: start: 20180219, end: 20180302
  25. CLONIDINE. [Concomitant]
     Active Substance: CLONIDINE
     Indication: DRUG DEPENDENCE
     Dosage: 150 MICROGRAM, BID
     Route: 065
     Dates: start: 20180303, end: 20200528

REACTIONS (3)
  - Suicidal ideation [Recovered/Resolved]
  - Major depression [Recovered/Resolved]
  - Suicide attempt [Recovered/Resolved]

NARRATIVE: CASE EVENT DATE: 20180219
